FAERS Safety Report 9053744 (Version 1)
Quarter: 2013Q1

REPORT INFORMATION
  Report Type: Spontaneous
  Country: US (occurrence: None)
  Receive Date: 20130117
  Receipt Date: 20130117
  Transmission Date: 20140127
  Serious: Yes (Death)
  Sender: FDA-Public Use
  Company Number: 2013POI058000076

PATIENT
  Age: 60 Year
  Sex: Male

DRUGS (7)
  1. ETODOLAC [Suspect]
     Route: 048
     Dates: end: 2011
  2. METFORMIN [Suspect]
     Route: 048
     Dates: end: 2011
  3. MELOXICAM [Suspect]
     Route: 048
     Dates: end: 2011
  4. PIOGLITAZONE [Suspect]
     Route: 048
     Dates: end: 2011
  5. PRAVASTATIN [Suspect]
     Route: 048
     Dates: end: 2011
  6. SIMVASTATIN [Suspect]
     Route: 048
     Dates: end: 2011
  7. ROSUVASTATIN [Suspect]
     Route: 048
     Dates: end: 2011

REACTIONS (2)
  - Respiratory arrest [None]
  - Cardiac arrest [None]
